FAERS Safety Report 5224858-1 (Version None)
Quarter: 2007Q1

REPORT INFORMATION
  Report Type: 
  Country: None (occurrence: None)
  Receive Date: 20070126
  Receipt Date: 20070118
  Transmission Date: 20070707
  Serious: Yes (Other)
  Sender: FDA-Public Use
  Company Number: 2007SP001200

PATIENT
  Sex: Female

DRUGS (2)
  1. PEG-INTRON [Suspect]
     Indication: HEPATITIS C
     Dates: start: 20060701, end: 20070113
  2. RIBAVIRIN [Suspect]
     Indication: HEPATITIS C
     Dosage: PO
     Route: 048
     Dates: start: 20060701, end: 20070113

REACTIONS (15)
  - CHROMATURIA [None]
  - COUGH [None]
  - DEPRESSION [None]
  - DRY SKIN [None]
  - DYSPHAGIA [None]
  - FATIGUE [None]
  - FLUID INTAKE REDUCED [None]
  - HYPOTRICHOSIS [None]
  - INSOMNIA [None]
  - NAUSEA [None]
  - PAIN [None]
  - PLATELET COUNT DECREASED [None]
  - RED BLOOD CELL COUNT DECREASED [None]
  - THYROID CYST [None]
  - WHITE BLOOD CELL COUNT DECREASED [None]
